FAERS Safety Report 4373115-4 (Version None)
Quarter: 2004Q2

REPORT INFORMATION
  Report Type: 
  Country: None (occurrence: None)
  Receive Date: 20040603
  Receipt Date: 20040519
  Transmission Date: 20050107
  Serious: Yes (Hospitalization, Other)
  Sender: FDA-Public Use
  Company Number: USA040568016

PATIENT
  Age: 61 Year
  Sex: Female
  Weight: 82 kg

DRUGS (8)
  1. HUMALOG [Suspect]
     Indication: DIABETES MELLITUS
     Dosage: 14 U DAY
     Dates: start: 19970101
  2. HUMULIN N [Suspect]
     Indication: DIABETES MELLITUS
     Dosage: 20 U/I IN THE MORNING
  3. HUMULIN N [Suspect]
     Indication: DIABETES MELLITUS
     Dosage: 28 U IN THE EVENING
  4. PLAVIX [Concomitant]
  5. ATENOLOL [Concomitant]
  6. PRAVACHOL [Concomitant]
  7. ELAVIL [Concomitant]
  8. ASPIRIN [Concomitant]

REACTIONS (10)
  - BLOOD GLUCOSE INCREASED [None]
  - CORONARY ARTERIAL STENT INSERTION [None]
  - DEVICE FAILURE [None]
  - HYPOTHYROIDISM [None]
  - MYOCARDIAL INFARCTION [None]
  - PHARMACEUTICAL PRODUCT COMPLAINT [None]
  - SCAR [None]
  - STRESS SYMPTOMS [None]
  - VOMITING [None]
  - WEIGHT INCREASED [None]
